FAERS Safety Report 5488309-4 (Version None)
Quarter: 2007Q4

REPORT INFORMATION
  Report Type: 
  Country: None (occurrence: None)
  Receive Date: 20071005
  Receipt Date: 20070827
  Transmission Date: 20080405
  Serious: Yes (Other)
  Sender: FDA-Public Use
  Company Number: PHEH2007US08999

PATIENT
  Age: 63 Year
  Sex: Female
  Weight: 68.5 kg

DRUGS (6)
  1. TEKTURNA [Suspect]
     Indication: HYPERTENSION
     Dosage: 150 MG, QD, ORAL; 75 MG, QD, ORAL; 150 MG, QD, ORAL
     Route: 048
     Dates: start: 20070508, end: 20070501
  2. TEKTURNA [Suspect]
     Indication: HYPERTENSION
     Dosage: 150 MG, QD, ORAL; 75 MG, QD, ORAL; 150 MG, QD, ORAL
     Route: 048
     Dates: start: 20070501
  3. LOTREL [Suspect]
     Indication: HYPERTENSION
     Dosage: 10/20 MG, QHS, ORAL
     Route: 048
     Dates: start: 20060823
  4. DIOVAN [Suspect]
     Dosage: IN THE AM, QD, ORAL
     Route: 048
  5. DIOVAN HCT [Concomitant]
  6. CLONIDINE [Concomitant]

REACTIONS (5)
  - ASTHENIA [None]
  - BLOOD PRESSURE SYSTOLIC DECREASED [None]
  - DECREASED ACTIVITY [None]
  - GLOMERULAR FILTRATION RATE DECREASED [None]
  - HYPOTENSION [None]
